FAERS Safety Report 14215801 (Version 1)
Quarter: 2017Q4

REPORT INFORMATION
  Report Type: Report from Study
  Country: US (occurrence: US)
  Receive Date: 20171122
  Receipt Date: 20171122
  Transmission Date: 20180321
  Serious: Yes (Other)
  Sender: FDA-Public Use
  Company Number: US-CELGENEUS-USA-20171106143

PATIENT

DRUGS (4)
  1. ROMIDEPSIN. [Suspect]
     Active Substance: ROMIDEPSIN
     Dosage: 14 MILLIGRAM/SQ. METER
     Route: 065
  2. AZACITIDINE ORAL (CC-486) [Suspect]
     Active Substance: AZACITIDINE
     Indication: PERIPHERAL T-CELL LYMPHOMA UNSPECIFIED
     Dosage: 100 MG/DAY
     Route: 048
  3. AZACITIDINE ORAL (CC-486) [Suspect]
     Active Substance: AZACITIDINE
     Dosage: 300 MG/DAY
     Route: 048
  4. ROMIDEPSIN. [Suspect]
     Active Substance: ROMIDEPSIN
     Indication: PERIPHERAL T-CELL LYMPHOMA UNSPECIFIED
     Dosage: 10 MILLIGRAM/SQ. METER
     Route: 065

REACTIONS (5)
  - Pleural effusion [Unknown]
  - Neutropenia [Unknown]
  - Thrombocytopenia [Unknown]
  - Drug dose omission [Unknown]
  - Febrile neutropenia [Unknown]
